FAERS Safety Report 7180441-2 (Version None)
Quarter: 2010Q4

REPORT INFORMATION
  Report Type: 
  Country: None (occurrence: None)
  Receive Date: 20101221
  Receipt Date: 20101215
  Transmission Date: 20110411
  Serious: Yes (Hospitalization, Disabling, Other)
  Sender: FDA-Public Use
  Company Number: US-US-EMD SERONO, INC.-7022441

PATIENT
  Sex: Female

DRUGS (8)
  1. REBIF [Suspect]
     Indication: MULTIPLE SCLEROSIS
     Route: 058
     Dates: start: 20061109, end: 20101108
  2. BACLOFEN [Concomitant]
  3. GABAPENTIN [Concomitant]
     Indication: MUSCLE SPASMS
     Dates: start: 20100501
  4. GABAPENTIN [Concomitant]
     Indication: PAIN
  5. VICODIN [Concomitant]
  6. UNSPECIFIED PREMEDICATION [Concomitant]
     Indication: PREMEDICATION
  7. NUVIGIL [Concomitant]
     Indication: FATIGUE
     Dates: start: 20101101
  8. ATENOLOL [Concomitant]
     Indication: HYPERTENSION

REACTIONS (6)
  - CLOSTRIDIAL INFECTION [None]
  - CYSTITIS [None]
  - GAIT DISTURBANCE [None]
  - HYPOKINESIA [None]
  - MULTIPLE SCLEROSIS RELAPSE [None]
  - PROGRESSIVE MULTIPLE SCLEROSIS [None]
